FAERS Safety Report 21718352 (Version 1)
Quarter: 2022Q4

REPORT INFORMATION
  Report Type: Spontaneous
  Country: US (occurrence: US)
  Receive Date: 20221212
  Receipt Date: 20221212
  Transmission Date: 20230112
  Serious: Yes (Other)
  Sender: FDA-Public Use
  Company Number: US-JNJFOC-20221211727

PATIENT
  Age: 90 Year
  Sex: Male
  Weight: 72.640 kg

DRUGS (1)
  1. XARELTO [Suspect]
     Active Substance: RIVAROXABAN
     Indication: Product used for unknown indication
     Dosage: GTIN NUMBER 00350458578904?SERIAL NUMBER 10001458652
     Route: 048

REACTIONS (2)
  - Eye haemorrhage [Unknown]
  - Increased tendency to bruise [Not Recovered/Not Resolved]
